FAERS Safety Report 9619215 (Version 1)
Quarter: 2013Q4

REPORT INFORMATION
  Report Type: Spontaneous
  Country: US (occurrence: US)
  Receive Date: 20131014
  Receipt Date: 20131014
  Transmission Date: 20140711
  Serious: Yes (Other)
  Sender: FDA-Public Use
  Company Number: US-SA-2013SA098676

PATIENT
  Age: 66 Year
  Sex: Male

DRUGS (3)
  1. LANTUS [Suspect]
     Indication: TYPE 2 DIABETES MELLITUS
     Dosage: PRODUCT START DATE- USED ABOUT A YEAR?PRODUCT END DATE-ABOUT 1 YEAR AGO DOSE:24 UNIT(S)
     Route: 051
  2. LANTUS SOLOSTAR [Suspect]
     Indication: TYPE 2 DIABETES MELLITUS
     Dosage: TAKEN FROM: 1 YEAR AGO. DOSE:24 UNIT(S)
     Route: 051
  3. HUMALOG [Suspect]
     Route: 065

REACTIONS (3)
  - Retinal disorder [Unknown]
  - Retinal haemorrhage [Unknown]
  - Visual acuity reduced [Unknown]
